FAERS Safety Report 11789454 (Version 5)
Quarter: 2016Q2

REPORT INFORMATION
  Report Type: Spontaneous
  Country: GB (occurrence: GB)
  Receive Date: 20151201
  Receipt Date: 20160527
  Transmission Date: 20160815
  Serious: Yes (Other)
  Sender: FDA-Public Use
  Company Number: GB-AMGEN-GBRSP2015048001

PATIENT
  Age: 29 Year
  Sex: Female
  Weight: 98 kg

DRUGS (29)
  1. HEPATITIS B VACCINE [Concomitant]
     Active Substance: HEPATITIS B VIRUS VACCINE
     Dosage: 40 MUG, ON DAY 0, 30 AND 180
     Route: 030
     Dates: start: 20150102, end: 20150521
  2. FOLIC ACID. [Concomitant]
     Active Substance: FOLIC ACID
     Indication: PREGNANCY
     Dosage: 100 MUG, QD
     Route: 048
     Dates: start: 20150514, end: 20151104
  3. PHOSEX [Concomitant]
     Dosage: 1 G, TID
     Route: 048
     Dates: start: 20150123
  4. VANCOMYCIN [Concomitant]
     Active Substance: VANCOMYCIN
     Indication: PERITONITIS
     Dosage: 1 G, UNK
     Route: 042
     Dates: start: 20150821, end: 20150822
  5. IRBESARTAN. [Concomitant]
     Active Substance: IRBESARTAN
     Dosage: 150 MG, QD
     Route: 048
     Dates: start: 20140401, end: 20150507
  6. RANITIDIN [Concomitant]
     Active Substance: RANITIDINE HYDROCHLORIDE
     Indication: GASTROINTESTINAL DISORDER
     Dosage: 4 MG, TID
     Route: 048
     Dates: start: 201511
  7. LACTULOSE. [Concomitant]
     Active Substance: LACTULOSE
     Indication: CONSTIPATION
     Dosage: 10 ML, BID AS NECESSARY
     Route: 048
     Dates: start: 20150223
  8. STELLISEPT [Concomitant]
     Indication: PROPHYLAXIS
     Dosage: UNK
     Dates: start: 20150820, end: 20150825
  9. ENOXAPARIN [Concomitant]
     Active Substance: ENOXAPARIN
     Indication: PROPHYLAXIS
     Dosage: 20 MG, QHS
     Route: 058
     Dates: start: 20151014, end: 20151027
  10. DOXAZOSIN [Concomitant]
     Active Substance: DOXAZOSIN\DOXAZOSIN MESYLATE
     Dosage: 4 MG, QD
     Route: 048
     Dates: start: 20140401, end: 20150403
  11. METHYLDOPA. [Concomitant]
     Active Substance: METHYLDOPA
     Dosage: 250 MG, TID
     Route: 048
     Dates: start: 20151012, end: 20151120
  12. RENAVIT [Concomitant]
     Dosage: 1 TAB, QD
     Dates: start: 20150603, end: 20150723
  13. TINZAPARIN [Concomitant]
     Active Substance: TINZAPARIN
     Dosage: 3500 UNIT, UNK
     Route: 042
  14. ABIDEC [Concomitant]
     Indication: VITAMIN SUPPLEMENTATION
     Dosage: 3 MG, QD
     Route: 048
     Dates: start: 201511
  15. ARANESP [Suspect]
     Active Substance: DARBEPOETIN ALFA
     Indication: NEPHROGENIC ANAEMIA
     Dosage: 40 MUG, QWK
     Route: 058
     Dates: start: 20140501
  16. NIFEDIPINE. [Concomitant]
     Active Substance: NIFEDIPINE
     Indication: BLOOD PRESSURE MEASUREMENT
     Dosage: 30 MG, QD
     Route: 048
     Dates: start: 20150507
  17. URSODEOXYCHOLIC ACID [Concomitant]
     Active Substance: URSODIOL
     Dosage: 250 MG, TID
     Route: 048
     Dates: start: 20150903, end: 20150904
  18. AMOXICILLIN. [Concomitant]
     Active Substance: AMOXICILLIN
     Indication: LOWER RESPIRATORY TRACT INFECTION
     Dosage: 500 MG, TID
     Route: 048
     Dates: start: 20150923, end: 20150930
  19. ASPIRIN                            /00002701/ [Concomitant]
     Active Substance: ASPIRIN
     Dosage: 75 MG, QD
     Route: 048
     Dates: start: 20150611
  20. LERCANIDIPINE [Concomitant]
     Active Substance: LERCANIDIPINE
     Dosage: 20 MG, QD
     Route: 048
     Dates: start: 20131120, end: 20150507
  21. LABETALOL [Concomitant]
     Active Substance: LABETALOL\LABETALOL HYDROCHLORIDE
     Dosage: 200 MG, UNK
     Route: 048
     Dates: start: 20151012
  22. SODIUM BICARBONATE. [Concomitant]
     Active Substance: SODIUM BICARBONATE
     Indication: ACID BASE BALANCE
     Dosage: 500 MG, TID
     Route: 048
     Dates: start: 20150218, end: 20150810
  23. FUROSEMIDE. [Concomitant]
     Active Substance: FUROSEMIDE
     Dosage: 40 MG, QD
     Route: 048
     Dates: start: 20140117, end: 20150507
  24. CALCITRIOL. [Concomitant]
     Active Substance: CALCITRIOL
     Dosage: 250 NG, QD
     Dates: start: 20140203
  25. OMEPRAZOLE. [Concomitant]
     Active Substance: OMEPRAZOLE
     Dosage: 40 MG, QD
     Route: 048
     Dates: start: 20131008
  26. NASEPTIN [Concomitant]
     Active Substance: CHLORHEXIDINE HYDROCHLORIDE\NEOMYCIN SULFATE
     Indication: PROPHYLAXIS
     Dosage: UNK UNK, QID
     Route: 061
     Dates: start: 20150820, end: 20150828
  27. CIPROFLOXACIN. [Concomitant]
     Active Substance: CIPROFLOXACIN
     Indication: PERITONITIS
     Dosage: UNK
     Dates: start: 20150821
  28. GAVICON                            /01291401/ [Concomitant]
     Indication: GASTROINTESTINAL DISORDER
     Dosage: UNK
     Route: 048
     Dates: start: 201511
  29. VENOFER [Concomitant]
     Active Substance: IRON SUCROSE
     Dosage: 200 MG, QWK
     Route: 042
     Dates: start: 20150625, end: 20151014

REACTIONS (8)
  - Pregnancy [Unknown]
  - Hypertension [Not Recovered/Not Resolved]
  - Haemodialysis [Unknown]
  - Premature delivery [Unknown]
  - Liver function test increased [Recovered/Resolved]
  - Hypoperfusion [Recovered/Resolved]
  - Haemoglobin abnormal [Unknown]
  - Cholestasis of pregnancy [Recovered/Resolved]

NARRATIVE: CASE EVENT DATE: 201505
